FAERS Safety Report 15568796 (Version 3)
Quarter: 2019Q1

REPORT INFORMATION
  Report Type: Spontaneous
  Country: ES (occurrence: ES)
  Receive Date: 20181031
  Receipt Date: 20190107
  Transmission Date: 20190417
  Serious: Yes (Other)
  Sender: FDA-Public Use
  Company Number: ES-BRISTOL-MYERS SQUIBB COMPANY-BMS-2018-099727

PATIENT
  Age: 52 Year
  Sex: Female

DRUGS (1)
  1. NIVOLUMAB [Suspect]
     Active Substance: NIVOLUMAB
     Indication: SQUAMOUS CELL CARCINOMA OF HEAD AND NECK
     Dosage: UNAVAILABLE
     Route: 065
     Dates: start: 20180116

REACTIONS (10)
  - Pancreatic atrophy [Unknown]
  - Pancreatic calcification [Unknown]
  - Hyperglycaemia [Unknown]
  - Hyponatraemia [Unknown]
  - Rash pruritic [Unknown]
  - Jugular vein thrombosis [Unknown]
  - Oropharyngeal candidiasis [Unknown]
  - Localised oedema [Unknown]
  - Pancreatitis chronic [Unknown]
  - Mouth swelling [Unknown]
